FAERS Safety Report 6157258-0 (Version None)
Quarter: 2009Q2

REPORT INFORMATION
  Report Type: 
  Country: None (occurrence: None)
  Receive Date: 20090416
  Receipt Date: 20090414
  Transmission Date: 20091009
  Serious: Yes (Hospitalization)
  Sender: FDA-Public Use
  Company Number: FR-ABBOTT-09P-056-0568066-00

PATIENT
  Age: 76 Year
  Sex: Male

DRUGS (10)
  1. ODRIK [Suspect]
     Indication: HYPERTENSION
     Route: 048
  2. FUROSEMID [Suspect]
     Indication: HYPERTENSION
     Route: 048
  3. TEMERIT [Suspect]
     Indication: HYPERTENSION
     Route: 048
  4. SEROPLEX [Suspect]
     Indication: DRUG USE FOR UNKNOWN INDICATION
     Route: 048
  5. TOPALGIC PR [Suspect]
     Indication: DRUG USE FOR UNKNOWN INDICATION
  6. DIFFU K [Concomitant]
     Indication: DRUG USE FOR UNKNOWN INDICATION
  7. ASPEGIC 325 [Concomitant]
     Indication: DRUG USE FOR UNKNOWN INDICATION
  8. CRESTOR [Concomitant]
     Indication: DRUG USE FOR UNKNOWN INDICATION
  9. FORLAX [Concomitant]
     Indication: DRUG USE FOR UNKNOWN INDICATION
  10. PREVISCAN [Concomitant]
     Indication: DRUG USE FOR UNKNOWN INDICATION

REACTIONS (3)
  - FALL [None]
  - HUMERUS FRACTURE [None]
  - ORTHOSTATIC HYPOTENSION [None]
